FAERS Safety Report 11929757 (Version 1)
Quarter: 2016Q1

REPORT INFORMATION
  Report Type: Spontaneous
  Country: US (occurrence: None)
  Receive Date: 20160119
  Receipt Date: 20160119
  Transmission Date: 20160526
  Serious: Yes (Other)
  Sender: FDA-Public Use
  Company Number: None

PATIENT
  Age: 55 Day
  Sex: Male

DRUGS (1)
  1. LICORICE COUGHING LIQUID [Suspect]
     Active Substance: GUAIFENESIN
     Indication: COUGH

REACTIONS (2)
  - Haemoptysis [None]
  - Haematochezia [None]

NARRATIVE: CASE EVENT DATE: 20160111
